FAERS Safety Report 9279220 (Version 5)
Quarter: 2013Q2

REPORT INFORMATION
  Report Type: Report from Study
  Country: FR (occurrence: FR)
  Receive Date: 20130508
  Receipt Date: 20130621
  Transmission Date: 20140414
  Serious: Yes (Other)
  Sender: FDA-Public Use
  Company Number: FR-BAYER-2013-050996

PATIENT
  Age: 52 Year
  Sex: Male

DRUGS (6)
  1. REGORAFENIB [Suspect]
     Indication: COLORECTAL CANCER METASTATIC
     Dosage: DAILY DOSE 160 MG
     Dates: start: 20130301, end: 20130323
  2. REGORAFENIB [Suspect]
     Indication: COLORECTAL CANCER METASTATIC
     Dosage: 120 MG PER DAY
     Dates: start: 20130402, end: 20130423
  3. DAFALGAN [Concomitant]
     Indication: PAIN
     Dosage: 500 MG, TID
  4. DAFALGAN [Concomitant]
     Indication: PAIN
     Dosage: 500 MG, BID
  5. SMECTA [SMECTITE] [Concomitant]
     Dosage: 1 DF, TID
  6. PRODIUM [Concomitant]
     Dosage: PRN

REACTIONS (11)
  - Hepatic function abnormal [Not Recovered/Not Resolved]
  - Coma [None]
  - Confusional state [None]
  - Pyrexia [None]
  - Diarrhoea [None]
  - Asthenia [Not Recovered/Not Resolved]
  - Fatigue [Not Recovered/Not Resolved]
  - Nausea [Not Recovered/Not Resolved]
  - Decreased appetite [Not Recovered/Not Resolved]
  - Jaundice [Not Recovered/Not Resolved]
  - Weight decreased [Not Recovered/Not Resolved]
